FAERS Safety Report 9413474 (Version 2)
Quarter: 2013Q4

REPORT INFORMATION
  Report Type: Report from Study
  Country: BR (occurrence: BR)
  Receive Date: 20130722
  Receipt Date: 20131014
  Transmission Date: 20140711
  Serious: Yes (Hospitalization)
  Sender: FDA-Public Use
  Company Number: BR-ELI_LILLY_AND_COMPANY-BR201307003950

PATIENT
  Age: 72 Year
  Sex: Female

DRUGS (1)
  1. TERIPARATIDE [Suspect]
     Indication: FRACTURE
     Dosage: 20 UG, QD
     Route: 058
     Dates: start: 20130524

REACTIONS (3)
  - Infarction [Unknown]
  - Memory impairment [Unknown]
  - Off label use [Unknown]
